FAERS Safety Report 7305033-3 (Version None)
Quarter: 2011Q1

REPORT INFORMATION
  Report Type: 
  Country: None (occurrence: None)
  Receive Date: 20110222
  Receipt Date: 20110211
  Transmission Date: 20110831
  Serious: Yes (Other)
  Sender: FDA-Public Use
  Company Number: IT-NOVOPROD-323168

PATIENT
  Age: 60 Year

DRUGS (7)
  1. VICTOZA [Suspect]
     Indication: TYPE 2 DIABETES MELLITUS
     Dosage: 0.6 MG, QD
     Route: 065
     Dates: start: 20101201
  2. CALCIUM CHANNEL BLOCKERS [Concomitant]
     Indication: HYPERTENSION
  3. EZETIMIBE/SIMVASTATIN [Concomitant]
     Indication: DYSLIPIDAEMIA
  4. OMEGA-3 FATTY ACIDS [Concomitant]
     Indication: DYSLIPIDAEMIA
  5. VICTOZA [Suspect]
     Dosage: 0.6 MG, QD
     Route: 065
     Dates: start: 20110206, end: 20110209
  6. ACE INHIBITORS [Concomitant]
     Indication: HYPERTENSION
     Dosage: UNK
  7. INSULIN [Concomitant]
     Indication: TYPE 2 DIABETES MELLITUS

REACTIONS (1)
  - DIVERTICULUM INTESTINAL [None]
